FAERS Safety Report 6974552-1 (Version None)
Quarter: 2010Q3

REPORT INFORMATION
  Report Type: 
  Country: None (occurrence: None)
  Receive Date: 20100909
  Receipt Date: 20081008
  Transmission Date: 20110219
  Serious: No
  Sender: FDA-Public Use
  Company Number: US-WYE-H06311708

PATIENT

DRUGS (1)
  1. PROTONIX [Suspect]
     Indication: GASTROOESOPHAGEAL REFLUX DISEASE
     Dosage: 40 MG, FREQUENCY UNSPECIFIED
     Route: 065

REACTIONS (2)
  - DRUG SCREEN POSITIVE [None]
  - NONSPECIFIC REACTION [None]
